FAERS Safety Report 4844671-4 (Version None)
Quarter: 2005Q4

REPORT INFORMATION
  Report Type: 
  Country: None (occurrence: None)
  Receive Date: 20051129
  Receipt Date: 20051123
  Transmission Date: 20060501
  Serious: Yes (Hospitalization, Disabling)
  Sender: FDA-Public Use
  Company Number: 200512070BWH

PATIENT
  Age: 28 Year
  Sex: Female

DRUGS (1)
  1. AVELOX [Suspect]
     Indication: BRONCHITIS
     Dates: start: 20040809

REACTIONS (7)
  - AREFLEXIA [None]
  - BACK PAIN [None]
  - DIFFICULTY IN WALKING [None]
  - FALL [None]
  - HEADACHE [None]
  - MOVEMENT DISORDER [None]
  - PARALYSIS [None]
